FAERS Safety Report 17638453 (Version 1)
Quarter: 2020Q2

REPORT INFORMATION
  Report Type: Spontaneous
  Country: RU (occurrence: RU)
  Receive Date: 20200407
  Receipt Date: 20200407
  Transmission Date: 20200713
  Serious: Yes (Death, Other)
  Sender: FDA-Public Use
  Company Number: RU-JNJFOC-20200403070

PATIENT

DRUGS (1)
  1. EVICEL [Suspect]
     Active Substance: FIBRINOGEN HUMAN\THROMBIN HUMAN
     Indication: PRODUCT USE IN UNAPPROVED INDICATION
     Route: 065

REACTIONS (13)
  - Meningitis [Unknown]
  - Subcutaneous abscess [Unknown]
  - Pseudomeningocele [Unknown]
  - Anaemia [Unknown]
  - Shunt infection [Unknown]
  - Wound necrosis [Unknown]
  - Off label use [Unknown]
  - Circulatory collapse [Fatal]
  - Cerebrospinal fluid leakage [Unknown]
  - Product use in unapproved indication [Unknown]
  - Tumour haemorrhage [Unknown]
  - Haematoma [Unknown]
  - Extradural haematoma [Unknown]
